FAERS Safety Report 9354070 (Version 1)
Quarter: 2013Q2

REPORT INFORMATION
  Report Type: Spontaneous
  Country: US (occurrence: None)
  Receive Date: 20130613
  Receipt Date: 20130613
  Transmission Date: 20140414
  Serious: Yes (Hospitalization)
  Sender: FDA-Public Use
  Company Number: HCDA20130103

PATIENT
  Age: 36 Year
  Sex: Female

DRUGS (1)
  1. HYDROCODONE BITARTRATE/ACETAMINOPHEN (PARACETAMOL,NHYDROCODONE BITARTRATE) (TABLETS) [Suspect]
     Indication: PRODUCT USED FOR UNKNOWN INDICATION
     Route: 048

REACTIONS (6)
  - Abdominal pain [None]
  - Nausea [None]
  - Vomiting [None]
  - Tachypnoea [None]
  - Abdominal tenderness [None]
  - Metabolic acidosis [None]
